FAERS Safety Report 18654764 (Version 1)
Quarter: 2020Q4

REPORT INFORMATION
  Report Type: Spontaneous
  Country: SE (occurrence: SE)
  Receive Date: 20201223
  Receipt Date: 20201223
  Transmission Date: 20210114
  Serious: Yes (Other)
  Sender: FDA-Public Use
  Company Number: SE-MYLANLABS-2020M1103077

PATIENT
  Age: 8 Year
  Sex: Female

DRUGS (4)
  1. XYLOCAIN                           /00033401/ [Suspect]
     Active Substance: LIDOCAINE
     Indication: TOOTH EXTRACTION
     Dosage: UNK
  2. LIDOCAINE. [Suspect]
     Active Substance: LIDOCAINE
     Indication: ANAESTHESIA PROCEDURE
     Dosage: UNK
     Dates: start: 20201102, end: 20201102
  3. LIDOCAINE. [Suspect]
     Active Substance: LIDOCAINE
     Indication: TOOTH EXTRACTION
     Dosage: UNK
  4. XYLOCAIN                           /00033401/ [Suspect]
     Active Substance: LIDOCAINE
     Indication: ANAESTHESIA PROCEDURE
     Dosage: UNK
     Dates: start: 20201102, end: 20201102

REACTIONS (1)
  - Lip swelling [Recovered/Resolved]

NARRATIVE: CASE EVENT DATE: 20201102
